FAERS Safety Report 16793553 (Version 4)
Quarter: 2020Q4

REPORT INFORMATION
  Report Type: Report from Study
  Country: None (occurrence: US)
  Receive Date: 20190911
  Receipt Date: 20201006
  Transmission Date: 20210113
  Serious: Yes (Hospitalization, Other)
  Sender: FDA-Public Use
  Company Number: US-ABBVIE-19K-163-2914266-00

PATIENT
  Age: 26 Year
  Sex: Female
  Weight: 113.5 kg

DRUGS (4)
  1. HUMIRA [Suspect]
     Active Substance: ADALIMUMAB
     Indication: CROHN^S DISEASE
     Route: 058
     Dates: start: 201201
  2. AZATHIOPRINE. [Concomitant]
     Active Substance: AZATHIOPRINE
     Indication: CROHN^S DISEASE
  3. HUMIRA [Suspect]
     Active Substance: ADALIMUMAB
     Route: 058
  4. ALEGRA [Concomitant]
     Indication: MECHANICAL URTICARIA

REACTIONS (10)
  - Factor V Leiden mutation [Recovering/Resolving]
  - Large intestine perforation [Recovered/Resolved]
  - Crohn^s disease [Recovering/Resolving]
  - Pain [Recovered/Resolved]
  - Fistula [Recovered/Resolved]
  - Maternal exposure during pregnancy [Unknown]
  - Hypoaesthesia [Recovered/Resolved]
  - Large intestine operation [Recovered/Resolved]
  - Small intestinal resection [Recovered/Resolved]
  - Normal newborn [Unknown]

NARRATIVE: CASE EVENT DATE: 201308
